FAERS Safety Report 8020408-5 (Version None)
Quarter: 2012Q1

REPORT INFORMATION
  Report Type: 
  Country: None (occurrence: None)
  Receive Date: 20120103
  Receipt Date: 20111221
  Transmission Date: 20120608
  Serious: Yes (Hospitalization)
  Sender: FDA-Public Use
  Company Number: BR-US-EMD SERONO, INC.-7096905

PATIENT
  Sex: Female

DRUGS (9)
  1. REBIF [Suspect]
     Dates: start: 20110901
  2. CITALOPRAM [Concomitant]
     Indication: PRODUCT USED FOR UNKNOWN INDICATION
  3. TRYPTANOL (AMITRIPTYLINE) [Concomitant]
     Indication: PRODUCT USED FOR UNKNOWN INDICATION
  4. ANTIDEPRESSANT [Concomitant]
     Indication: PRODUCT USED FOR UNKNOWN INDICATION
  5. REBIF [Suspect]
     Indication: RELAPSING-REMITTING MULTIPLE SCLEROSIS
     Dates: start: 20090701
  6. ACETAMINOPHEN W/ CODEINE [Concomitant]
     Indication: PRODUCT USED FOR UNKNOWN INDICATION
  7. CLONAZEPAM [Suspect]
     Indication: PRODUCT USED FOR UNKNOWN INDICATION
  8. NEURONTIN [Suspect]
     Indication: PAIN
  9. CORTICOSTEROIDS [Suspect]
     Indication: MULTIPLE SCLEROSIS RELAPSE

REACTIONS (11)
  - MACULE [None]
  - POLYNEUROPATHY [None]
  - DRUG HYPERSENSITIVITY [None]
  - ALOPECIA [None]
  - INJECTION SITE NODULE [None]
  - SWELLING FACE [None]
  - HEADACHE [None]
  - INJECTION SITE PAIN [None]
  - INAPPROPRIATE SCHEDULE OF DRUG ADMINISTRATION [None]
  - PAIN [None]
  - VITAMIN D DEFICIENCY [None]
